FAERS Safety Report 4869680-0 (Version None)
Quarter: 2005Q4

REPORT INFORMATION
  Report Type: 
  Country: None (occurrence: None)
  Receive Date: 20051223
  Receipt Date: 20051214
  Transmission Date: 20060501
  Serious: Yes (Hospitalization)
  Sender: FDA-Public Use
  Company Number: HQWYE029915DEC05

PATIENT
  Age: 41 Year
  Sex: Male

DRUGS (8)
  1. RAPAMUNE [Suspect]
     Indication: PROPHYLAXIS AGAINST TRANSPLANT REJECTION
     Dosage: 5 MG 1X PER 1 DAY
     Route: 048
     Dates: start: 20041114
  2. AMPICILLIN SODIUM W/SULBACTAM SODIUM (AMPICILLIN SODIUM/SULBACTAM SODI [Concomitant]
  3. OMEPRAZOLE [Concomitant]
  4. ACETYLCYSTEINE [Concomitant]
  5. FUROSEMIDE [Concomitant]
  6. BACTRIM [Concomitant]
  7. ACYCLOVIR [Concomitant]
  8. NYSTATIN [Concomitant]

REACTIONS (1)
  - INCISION SITE HAEMORRHAGE [None]
